FAERS Safety Report 12057723 (Version 2)
Quarter: 2016Q1

REPORT INFORMATION
  Report Type: Report from Study
  Country: US (occurrence: US)
  Receive Date: 20160210
  Receipt Date: 20160321
  Transmission Date: 20160526
  Serious: Yes (Hospitalization, Other)
  Sender: FDA-Public Use
  Company Number: US-AMGEN-USASL2016014580

PATIENT
  Age: 74 Year
  Sex: Female

DRUGS (1)
  1. ENBREL [Suspect]
     Active Substance: ETANERCEPT
     Indication: RHEUMATOID ARTHRITIS
     Dosage: 50 MG, QWK
     Route: 065
     Dates: start: 20151022

REACTIONS (7)
  - Fatigue [Unknown]
  - Drug dose omission [Unknown]
  - Arthritis [Unknown]
  - Cellulitis [Unknown]
  - Arrhythmia [Unknown]
  - Diarrhoea [Unknown]
  - Bursitis [Unknown]

NARRATIVE: CASE EVENT DATE: 20160121
